FAERS Safety Report 5706514-6 (Version None)
Quarter: 2008Q2

REPORT INFORMATION
  Report Type: 
  Country: None (occurrence: None)
  Receive Date: 20080414
  Receipt Date: 20080328
  Transmission Date: 20081010
  Serious: Yes (Hospitalization, Other)
  Sender: FDA-Public Use
  Company Number: 025568

PATIENT
  Age: 60 Year
  Sex: Female
  Weight: 49.9 kg

DRUGS (12)
  1. AZITHROMYCIN [Suspect]
     Indication: BRONCHITIS
     Dosage: 500 MG, SINGLE, ORAL
     Route: 048
     Dates: start: 20080125, end: 20080126
  2. VERAPAMIL [Suspect]
     Indication: MITRAL VALVE PROLAPSE
     Dosage: 120 MG, ORAL
     Route: 048
     Dates: start: 20070101, end: 20080215
  3. ATENOLOL [Concomitant]
  4. INHALERS NOS [Concomitant]
  5. FLOVENT [Concomitant]
  6. ALBUTEROL [Concomitant]
  7. ACCOLATE [Concomitant]
  8. ZOLOFT [Concomitant]
  9. VITAMINS [Concomitant]
  10. METHIMAZOLE [Concomitant]
  11. PROTONIX [Concomitant]
  12. ACCOLATE [Concomitant]

REACTIONS (14)
  - ANGINA PECTORIS [None]
  - BURNING SENSATION [None]
  - CHEST PAIN [None]
  - DIARRHOEA [None]
  - DIZZINESS [None]
  - DRUG HYPERSENSITIVITY [None]
  - DRUG INTERACTION [None]
  - DYSPNOEA [None]
  - FEELING ABNORMAL [None]
  - HEADACHE [None]
  - LOSS OF CONSCIOUSNESS [None]
  - MYOCARDIAL INFARCTION [None]
  - PAIN IN EXTREMITY [None]
  - TREMOR [None]
